FAERS Safety Report 12288131 (Version 8)
Quarter: 2016Q4

REPORT INFORMATION
  Report Type: Report from Study
  Country: CA (occurrence: CA)
  Receive Date: 20160420
  Receipt Date: 20161115
  Transmission Date: 20170207
  Serious: Yes (Hospitalization, Other)
  Sender: FDA-Public Use
  Company Number: PHHY2016CA006708

PATIENT
  Age: 63 Year
  Sex: Female

DRUGS (2)
  1. SANDOSTATIN LAR DEPOT [Suspect]
     Active Substance: OCTREOTIDE ACETATE
     Indication: ACROMEGALY
     Dosage: 20 MG, QMO (EVERY 4 WEEKS)
     Route: 030
     Dates: start: 20160117
  2. SANDOSTATIN [Suspect]
     Active Substance: OCTREOTIDE ACETATE
     Indication: ACROMEGALY
     Dosage: 100 UG, ONCE/SINGLE (TEST DOSE)
     Route: 058
     Dates: start: 20160116, end: 20160116

REACTIONS (21)
  - Abscess oral [Unknown]
  - Hyperhidrosis [Recovering/Resolving]
  - Pancreatolithiasis [Unknown]
  - Onychalgia [Unknown]
  - Nail growth abnormal [Unknown]
  - Visual impairment [Unknown]
  - Sleep apnoea syndrome [Unknown]
  - Nail pigmentation [Unknown]
  - Onychomadesis [Unknown]
  - Eyelid oedema [Unknown]
  - Headache [Unknown]
  - Alopecia [Not Recovered/Not Resolved]
  - Eyelid ptosis [Unknown]
  - Diarrhoea [Unknown]
  - Nephrolithiasis [Unknown]
  - Neoplasm [Unknown]
  - Eyelid disorder [Unknown]
  - Blood pressure systolic increased [Unknown]
  - Blood pressure increased [Unknown]
  - Onychomycosis [Unknown]
  - Initial insomnia [Unknown]

NARRATIVE: CASE EVENT DATE: 20160116
